FAERS Safety Report 4685704-8 (Version None)
Quarter: 2005Q2

REPORT INFORMATION
  Report Type: 
  Country: None (occurrence: None)
  Receive Date: 20050608
  Receipt Date: 20050526
  Transmission Date: 20051028
  Serious: Yes (Life-Threatening)
  Sender: FDA-Public Use
  Company Number: CIP05001255

PATIENT
  Age: 86 Year
  Sex: Female

DRUGS (1)
  1. DIDRONEL [Suspect]
     Indication: OSTEOPOROSIS
     Dosage: 200 MG DAILY, ORAL
     Route: 048
     Dates: start: 20050510

REACTIONS (1)
  - HEPATIC FUNCTION ABNORMAL [None]
